FAERS Safety Report 13392945 (Version 1)
Quarter: 2017Q1

REPORT INFORMATION
  Report Type: Spontaneous
  Country: GB (occurrence: GB)
  Receive Date: 20170331
  Receipt Date: 20170331
  Transmission Date: 20170429
  Serious: Yes (Other)
  Sender: FDA-Public Use
  Company Number: GB-MYLANLABS-2017M1019540

PATIENT

DRUGS (7)
  1. TERBINAFINE. [Concomitant]
     Active Substance: TERBINAFINE
     Dosage: 1 DF, BID
     Dates: start: 20161207
  2. ADCAL                              /07357001/ [Concomitant]
     Dosage: LIFE LONG.
     Dates: start: 20161207
  3. LEVOTHYROXINE. [Concomitant]
     Active Substance: LEVOTHYROXINE
     Dosage: 1 DF, QD
     Dates: start: 20161207
  4. BENDROFLUMETHIAZIDE [Concomitant]
     Active Substance: BENDROFLUMETHIAZIDE
     Dosage: EACH MORNING
     Dates: start: 20161207
  5. HYOSCINE BUTYLBROMIDE [Concomitant]
     Active Substance: BUTYLSCOPOLAMINE
     Dosage: TAKE ONE THREE TIMES DAILY WHEN REQUIRED (INCRE...
     Dates: start: 20161207
  6. HYDROXOCOBALAMIN [Concomitant]
     Active Substance: HYDROXOCOBALAMIN
     Dosage: 1 DF, Q3MONTHS
     Dates: start: 20160609
  7. LEVONORGESTREL. [Suspect]
     Active Substance: LEVONORGESTREL
     Dosage: 1.5 MG, UNK
     Dates: start: 20170222

REACTIONS (6)
  - Myalgia [Unknown]
  - Burning sensation [Unknown]
  - Blister [Recovering/Resolving]
  - Skin exfoliation [Unknown]
  - Pyrexia [Unknown]
  - Dermatitis bullous [Unknown]

NARRATIVE: CASE EVENT DATE: 20170223
